FAERS Safety Report 6007744-9 (Version None)
Quarter: 2008Q4

REPORT INFORMATION
  Report Type: 
  Country: None (occurrence: None)
  Receive Date: 20081217
  Receipt Date: 20080815
  Transmission Date: 20090506
  Serious: No
  Sender: FDA-Public Use
  Company Number: US-ASTRAZENECA-2008UW10734

PATIENT
  Age: 83 Year
  Sex: Female
  Weight: 51.3 kg

DRUGS (5)
  1. CRESTOR [Suspect]
     Indication: BLOOD CHOLESTEROL INCREASED
     Route: 048
     Dates: start: 20080422, end: 20080527
  2. ENALAPRIL MALEATE [Concomitant]
     Dates: start: 20071201
  3. ASPIRIN [Concomitant]
     Dates: start: 20071201
  4. VITAMINS [Concomitant]
  5. FISH OIL [Concomitant]
     Dates: start: 20071201

REACTIONS (6)
  - DECREASED APPETITE [None]
  - FATIGUE [None]
  - MYALGIA [None]
  - PRURITUS [None]
  - RASH [None]
  - WEIGHT DECREASED [None]
